FAERS Safety Report 19269869 (Version 1)
Quarter: 2021Q2

REPORT INFORMATION
  Report Type: Spontaneous
  Country: DE (occurrence: DE)
  Receive Date: 20210518
  Receipt Date: 20210518
  Transmission Date: 20210717
  Serious: Yes (Hospitalization)
  Sender: FDA-Public Use
  Company Number: DE-BAYER-2021-141721

PATIENT
  Age: 52 Year
  Sex: Female
  Weight: 87 kg

DRUGS (2)
  1. GADOVIST [Suspect]
     Active Substance: GADOBUTROL
     Indication: MAGNETIC RESONANCE IMAGING HEAD
     Dosage: 9 ML, ONCE
     Route: 042
     Dates: start: 20210427, end: 20210427
  2. GADOVIST [Suspect]
     Active Substance: GADOBUTROL
     Indication: MASS

REACTIONS (5)
  - Pruritus [None]
  - Lip oedema [None]
  - Dyspnoea [None]
  - Pustule [None]
  - Tongue oedema [None]

NARRATIVE: CASE EVENT DATE: 20210427
